FAERS Safety Report 5825234-0 (Version None)
Quarter: 2008Q3

REPORT INFORMATION
  Report Type: 
  Country: None (occurrence: None)
  Receive Date: 20080729
  Receipt Date: 20080725
  Transmission Date: 20090109
  Serious: Yes (Death, Other)
  Sender: FDA-Public Use
  Company Number: FR-RB-002660-08

PATIENT

DRUGS (3)
  1. SUBUTEX [Suspect]
     Indication: DRUG USE FOR UNKNOWN INDICATION
     Route: 065
  2. CHLOROFORM [Suspect]
     Indication: DRUG USE FOR UNKNOWN INDICATION
     Dosage: UNKNOWN DOSE
     Route: 065
  3. TETRAHYDROCANNABINOL [Suspect]
     Indication: DRUG USE FOR UNKNOWN INDICATION
     Dosage: UNKNOWN DOSE.
     Route: 065

REACTIONS (5)
  - ASPHYXIA [None]
  - CYANOSIS [None]
  - INTENTIONAL DRUG MISUSE [None]
  - PULMONARY OEDEMA [None]
  - VISCERAL CONGESTION [None]
